FAERS Safety Report 7134557-7 (Version None)
Quarter: 2010Q4

REPORT INFORMATION
  Report Type: 
  Country: None (occurrence: None)
  Receive Date: 20101203
  Receipt Date: 20101129
  Transmission Date: 20110411
  Serious: Yes (Life-Threatening, Hospitalization)
  Sender: FDA-Public Use
  Company Number: JP-JNJFOC-20101201183

PATIENT
  Age: 48 Year
  Sex: Male

DRUGS (10)
  1. RISPERDAL [Suspect]
     Indication: SCHIZOPHRENIA
     Route: 048
  2. RISPERDAL [Suspect]
     Route: 048
  3. LEMONAMIN [Suspect]
     Indication: SCHIZOPHRENIA
     Route: 048
  4. LONASEN [Suspect]
     Indication: SCHIZOPHRENIA
     Route: 048
  5. NEULEPTIL [Suspect]
     Indication: SCHIZOPHRENIA
     Route: 048
  6. BROMPERIDOL [Concomitant]
     Route: 065
  7. HALOXAZOLAM [Concomitant]
     Route: 065
  8. ETIZOLAM [Concomitant]
     Route: 048
  9. BIPERIDEN LACTATE [Concomitant]
     Route: 048
  10. FLUNITRAZEPAM [Concomitant]
     Route: 048

REACTIONS (8)
  - CONVULSION [None]
  - HYPOCHLORAEMIA [None]
  - HYPOKALAEMIA [None]
  - HYPONATRAEMIA [None]
  - NEUROLEPTIC MALIGNANT SYNDROME [None]
  - RESTLESSNESS [None]
  - RHABDOMYOLYSIS [None]
  - WATER INTOXICATION [None]
